FAERS Safety Report 5512536-0 (Version None)
Quarter: 2007Q4

REPORT INFORMATION
  Report Type: 
  Country: None (occurrence: None)
  Receive Date: 20071112
  Receipt Date: 20070716
  Transmission Date: 20080405
  Serious: No
  Sender: FDA-Public Use
  Company Number: A0664300A

PATIENT
  Age: 80 Year
  Sex: Male

DRUGS (10)
  1. AVANDAMET [Suspect]
     Route: 048
     Dates: start: 20070401
  2. ALLEGRA [Concomitant]
  3. BECLOMETHASONE DIPROPIONATE [Concomitant]
  4. DIOVAN [Concomitant]
  5. ZOCOR [Concomitant]
  6. ZETIA [Concomitant]
  7. TOPROL-XL [Concomitant]
  8. PROVENTIL GENTLEHALER [Concomitant]
  9. KAYEXALATE [Concomitant]
  10. LASIX [Concomitant]

REACTIONS (2)
  - BLOOD CREATINE INCREASED [None]
  - BLOOD POTASSIUM INCREASED [None]
